FAERS Safety Report 5702456-0 (Version None)
Quarter: 2008Q2

REPORT INFORMATION
  Report Type: 
  Country: None (occurrence: None)
  Receive Date: 20080411
  Receipt Date: 20080407
  Transmission Date: 20081010
  Serious: Yes (Death, Other)
  Sender: FDA-Public Use
  Company Number: SK-BRISTOL-MYERS SQUIBB COMPANY-14140313

PATIENT
  Age: 16 Year
  Sex: Female

DRUGS (1)
  1. AMPHOTERICIN B FOR INJECTION [Suspect]
     Route: 051

REACTIONS (2)
  - DEATH [None]
  - NEOPLASM MALIGNANT [None]
